FAERS Safety Report 23367892 (Version 1)
Quarter: 2024Q1

REPORT INFORMATION
  Report Type: Spontaneous
  Country: IT (occurrence: IT)
  Receive Date: 20240104
  Receipt Date: 20240104
  Transmission Date: 20240410
  Serious: Yes (Life-Threatening, Other)
  Sender: FDA-Public Use
  Company Number: IT-JAZZ PHARMACEUTICALS-2023-IT-025498

PATIENT

DRUGS (1)
  1. VYXEOS [Suspect]
     Active Substance: CYTARABINE\DAUNORUBICIN
     Indication: Acute myeloid leukaemia
     Dosage: 188 MILLIGRAM PER DAY ON 20-NOV-2023 AND 188 MILLIGRAM PER DAY ON 22-NOV-2023
     Route: 042
     Dates: start: 20231120, end: 20231122

REACTIONS (2)
  - Cardiac failure [Recovering/Resolving]
  - Pericardial haemorrhage [Recovering/Resolving]

NARRATIVE: CASE EVENT DATE: 20231218
